FAERS Safety Report 19270702 (Version 1)
Quarter: 2021Q2

REPORT INFORMATION
  Report Type: Report from Study
  Country: BR (occurrence: BR)
  Receive Date: 20210518
  Receipt Date: 20210518
  Transmission Date: 20210717
  Serious: Yes (Other)
  Sender: FDA-Public Use
  Company Number: NVSC2021BR102355

PATIENT
  Sex: Male

DRUGS (1)
  1. EXELON [Suspect]
     Active Substance: RIVASTIGMINE TARTRATE
     Indication: PRODUCT USED FOR UNKNOWN INDICATION
     Dosage: 4.6 MG, QD (PATCH 5 CM2), 9 MG RIVASTIGIMINE BASE)5/30)
     Route: 065

REACTIONS (4)
  - Drug dependence [Unknown]
  - Fabry^s disease [Unknown]
  - Cognitive disorder [Unknown]
  - Memory impairment [Unknown]
